FAERS Safety Report 4680167-0 (Version None)
Quarter: 2005Q2

REPORT INFORMATION
  Report Type: 
  Country: None (occurrence: None)
  Receive Date: 20050602
  Receipt Date: 20050330
  Transmission Date: 20051028
  Serious: Yes (Other)
  Sender: FDA-Public Use
  Company Number: PHEH2005US03754

PATIENT
  Age: 65 Year
  Sex: Male
  Weight: 77 kg

DRUGS (11)
  1. DURAGESIC-100 [Concomitant]
     Indication: PAIN
     Dosage: 100 MG, UNK
     Route: 062
     Dates: start: 20040101
  2. NEURONTIN [Concomitant]
     Indication: PAIN
     Dosage: 400 UNK, TID
     Dates: start: 20030101
  3. PROTONIX ^WYETH-AYERST^ [Concomitant]
     Indication: GASTROOESOPHAGEAL REFLUX DISEASE
     Dosage: 40 MG, QD
  4. FLOMAX ^CHIESI^ [Concomitant]
     Indication: BENIGN PROSTATIC HYPERPLASIA
  5. SYNTHROID [Concomitant]
     Indication: HYPOTHYROIDISM
  6. TOPROL-XL [Concomitant]
  7. AMIODARONE HCL [Concomitant]
  8. MULTI-VITAMINS [Concomitant]
  9. ASPIRIN [Concomitant]
  10. STOOL SOFTENER [Concomitant]
  11. ZOMETA [Suspect]
     Indication: MULTIPLE MYELOMA
     Dosage: 4 (UNSPECIFIED) EVERY 28 DAYS
     Dates: start: 20040124, end: 20041004

REACTIONS (9)
  - ASEPTIC NECROSIS BONE [None]
  - BACK PAIN [None]
  - CRACKLES LUNG [None]
  - DENTAL TREATMENT [None]
  - IMPAIRED HEALING [None]
  - ORAL SOFT TISSUE DISORDER [None]
  - OSTEONECROSIS [None]
  - TOOTH EXTRACTION [None]
  - UPPER RESPIRATORY TRACT INFECTION [None]
